FAERS Safety Report 5453828-3 (Version None)
Quarter: 2007Q3

REPORT INFORMATION
  Report Type: 
  Country: None (occurrence: None)
  Receive Date: 20070917
  Receipt Date: 20070911
  Transmission Date: 20080115
  Serious: Yes (Other)
  Sender: FDA-Public Use
  Company Number: A0680915A

PATIENT
  Age: 18 Year
  Sex: Female

DRUGS (3)
  1. VALTREX [Suspect]
     Indication: GENITAL HERPES
     Dosage: 500MG TWICE PER DAY
     Route: 048
     Dates: start: 20070501, end: 20070825
  2. WESTCORT [Suspect]
     Indication: PRURITUS
     Route: 061
     Dates: end: 20070825
  3. VISTARIL [Concomitant]

REACTIONS (5)
  - CUSHING'S SYNDROME [None]
  - CUSHINGOID [None]
  - DRUG ADMINISTRATION ERROR [None]
  - HIRSUTISM [None]
  - ILL-DEFINED DISORDER [None]
